FAERS Safety Report 4895193-6 (Version None)
Quarter: 2006Q1

REPORT INFORMATION
  Report Type: 
  Country: None (occurrence: None)
  Receive Date: 20060125
  Receipt Date: 20060111
  Transmission Date: 20060701
  Serious: Yes (Hospitalization)
  Sender: FDA-Public Use
  Company Number: UA-2005-026350

PATIENT
  Age: 21 Year
  Sex: Female
  Weight: 53 kg

DRUGS (1)
  1. YASMIN [Suspect]
     Indication: ORAL CONTRACEPTION
     Dosage: 1 TAB (S), 1X/DAY, ORAL
     Route: 048
     Dates: start: 20050901, end: 20051101

REACTIONS (7)
  - ASTHENIA [None]
  - BLOOD PRESSURE INCREASED [None]
  - CEREBRAL VENTRICLE DILATATION [None]
  - DEMYELINATION [None]
  - HEMIPARESIS [None]
  - MULTIPLE SCLEROSIS [None]
  - VERTIGO [None]
